FAERS Safety Report 6551640-5 (Version None)
Quarter: 2010Q1

REPORT INFORMATION
  Report Type: 
  Country: None (occurrence: None)
  Receive Date: 20100120
  Receipt Date: 20100104
  Transmission Date: 20100710
  Serious: Yes (Other)
  Sender: FDA-Public Use
  Company Number: 004882

PATIENT
  Sex: Male
  Weight: 83 kg

DRUGS (5)
  1. KEPPRA [Suspect]
     Indication: PARTIAL SEIZURES
     Dosage: (1000 MG BID ORAL)
     Route: 048
     Dates: start: 20070906, end: 20071014
  2. TTILEPTAL [Concomitant]
  3. VALPROATE SODIUM [Concomitant]
  4. ZONISAMIDE [Concomitant]
  5. LACOSAMIDE [Concomitant]

REACTIONS (8)
  - AGGRESSION [None]
  - COMPLEX PARTIAL SEIZURES [None]
  - CONDITION AGGRAVATED [None]
  - IMPULSE-CONTROL DISORDER [None]
  - IRRITABILITY [None]
  - TENSION [None]
  - TREMOR [None]
  - WEIGHT INCREASED [None]
